FAERS Safety Report 9437752 (Version 1)
Quarter: 2013Q3

REPORT INFORMATION
  Report Type: Spontaneous
  Country: US (occurrence: US)
  Receive Date: 20130802
  Receipt Date: 20130802
  Transmission Date: 20140515
  Serious: No
  Sender: FDA-Public Use
  Company Number: US-PFIZER INC-2013224729

PATIENT
  Age: 5 Year
  Sex: Male
  Weight: 22.68 kg

DRUGS (2)
  1. CHILDRENS ADVIL [Suspect]
     Dosage: 2 TEA SPOONS, EVERY 6 HOURS
     Route: 048
     Dates: start: 20130729
  2. FLUORIDE [Concomitant]
     Indication: SUPPLEMENTATION THERAPY
     Dosage: UNK

REACTIONS (3)
  - Hypersensitivity [Unknown]
  - Eye swelling [Unknown]
  - Product quality issue [Unknown]
